FAERS Safety Report 25321554 (Version 2)
Quarter: 2025Q3

REPORT INFORMATION
  Report Type: Spontaneous
  Country: US (occurrence: US)
  Receive Date: 20250516
  Receipt Date: 20250816
  Transmission Date: 20251020
  Serious: No
  Sender: ALEXION PHARMACEUTICALS
  Company Number: US-AstraZeneca-CH-00869149A

PATIENT
  Sex: Female

DRUGS (2)
  1. BYDUREON BCISE [Suspect]
     Active Substance: EXENATIDE
     Indication: Diabetes mellitus
     Route: 065
  2. GLIPIZIDE [Suspect]
     Active Substance: GLIPIZIDE
     Indication: Diabetes mellitus
     Route: 065

REACTIONS (9)
  - Product availability issue [Unknown]
  - Renal disorder [Unknown]
  - Bladder disorder [Unknown]
  - Lung disorder [Unknown]
  - Drug hypersensitivity [Unknown]
  - Pain [Unknown]
  - Erythema [Unknown]
  - Swelling [Unknown]
  - Asthenia [Unknown]
